FAERS Safety Report 16678492 (Version 1)
Quarter: 2019Q3

REPORT INFORMATION
  Report Type: Spontaneous
  Country: GB (occurrence: GB)
  Receive Date: 20190807
  Receipt Date: 20190807
  Transmission Date: 20191004
  Serious: Yes (Other)
  Sender: FDA-Public Use
  Company Number: GB-009507513-1908GBR002153

PATIENT
  Age: 20 Year
  Sex: Female
  Weight: 49 kg

DRUGS (1)
  1. NEXPLANON [Suspect]
     Active Substance: ETONOGESTREL
     Indication: CONTRACEPTION
     Dosage: UNK
     Dates: start: 20161201, end: 20170820

REACTIONS (8)
  - Abnormal loss of weight [Recovered/Resolved]
  - Alopecia [Recovered/Resolved]
  - Anxiety [Recovering/Resolving]
  - Vulvovaginal dryness [Recovered/Resolved]
  - Weight gain poor [Unknown]
  - Acne [Not Recovered/Not Resolved]
  - Libido decreased [Not Recovered/Not Resolved]
  - Urticaria [Recovered/Resolved]

NARRATIVE: CASE EVENT DATE: 201612
